FAERS Safety Report 9170984 (Version 1)
Quarter: 2013Q1

REPORT INFORMATION
  Report Type: Report from Study
  Country: DE (occurrence: DE)
  Receive Date: 20130319
  Receipt Date: 20130319
  Transmission Date: 20140127
  Serious: Yes (Death, Other)
  Sender: FDA-Public Use
  Company Number: DE-ASTELLAS-2013US002956

PATIENT
  Sex: Male

DRUGS (14)
  1. ERLOTINIB TABLET [Suspect]
     Indication: NON-SMALL CELL LUNG CANCER
     Dosage: 150 MG, UID/QD
     Route: 048
     Dates: start: 200501, end: 200502
  2. ERLOTINIB TABLET [Suspect]
     Dosage: 100 MG, UID/QD
     Route: 048
     Dates: start: 200502, end: 200503
  3. ERLOTINIB TABLET [Suspect]
     Dosage: 50 MG, UID/QD
     Route: 048
     Dates: start: 200503, end: 200603
  4. CARBOPLATIN [Suspect]
     Indication: NON-SMALL CELL LUNG CANCER
     Dosage: UNK
     Route: 065
     Dates: start: 200308, end: 200311
  5. CARBOPLATIN [Suspect]
     Dosage: UNK
     Route: 065
     Dates: start: 200608, end: 200611
  6. CARBOPLATIN [Suspect]
     Dosage: UNK
     Route: 065
     Dates: start: 200706, end: 200708
  7. GEMCITABINE [Suspect]
     Indication: NON-SMALL CELL LUNG CANCER
     Dosage: UNK
     Route: 065
     Dates: start: 200603, end: 200605
  8. PEMETREXED DISODIUM [Suspect]
     Indication: NON-SMALL CELL LUNG CANCER
     Dosage: UNK
     Route: 065
     Dates: start: 200608, end: 200611
  9. PEMETREXED DISODIUM [Suspect]
     Dosage: UNK
     Route: 065
     Dates: start: 200704, end: 200706
  10. PEMETREXED DISODIUM [Suspect]
     Dosage: UNK
     Route: 065
     Dates: start: 200706, end: 200708
  11. PEMETREXED DISODIUM [Suspect]
     Dosage: UNK
     Route: 065
     Dates: start: 200801, end: 200804
  12. DOCETAXEL [Suspect]
     Indication: NON-SMALL CELL LUNG CANCER
     Dosage: UNK
     Route: 065
     Dates: start: 200804, end: 200806
  13. CIBADREX [Concomitant]
     Indication: HYPERTENSION
     Dosage: 10 MG, UID/QD
     Route: 065
  14. NEBILET [Concomitant]
     Indication: HYPERTENSION
     Dosage: 5 MG, UID/QD
     Route: 065

REACTIONS (4)
  - Death [Fatal]
  - Malignant neoplasm progression [Unknown]
  - Diarrhoea [Unknown]
  - Rash [Unknown]
